FAERS Safety Report 21240011 (Version 1)
Quarter: 2022Q3

REPORT INFORMATION
  Report Type: Spontaneous
  Country: US (occurrence: None)
  Receive Date: 20220820
  Receipt Date: 20220820
  Transmission Date: 20221027
  Serious: Yes (Other)
  Sender: FDA-Public Use
  Company Number: None

PATIENT
  Age: 52 Year
  Sex: Female
  Weight: 67.5 kg

DRUGS (15)
  1. MONTELUKAST [Suspect]
     Active Substance: MONTELUKAST SODIUM
     Indication: Hypersensitivity
     Dosage: 1 TABLET AT BEDTIME ORAL?
     Route: 048
     Dates: start: 20220819, end: 20220820
  2. Serovent disc [Concomitant]
  3. QVAR [Concomitant]
     Active Substance: BECLOMETHASONE DIPROPIONATE
  4. ALBUTEROL [Concomitant]
     Active Substance: ALBUTEROL
  5. BABY ASPIRIN [Concomitant]
  6. ATORVASTATIN [Concomitant]
     Active Substance: ATORVASTATIN
  7. prednisone (temporary) [Concomitant]
  8. LORATADINE [Concomitant]
     Active Substance: LORATADINE
  9. MAGNESIUM [Concomitant]
     Active Substance: MAGNESIUM
  10. CALCIUM [Concomitant]
     Active Substance: CALCIUM
  11. ZINC [Concomitant]
     Active Substance: ZINC
  12. VITAMIN E [Concomitant]
     Active Substance: .ALPHA.-TOCOPHEROL
  13. VITAMIN D3 [Concomitant]
     Active Substance: CHOLECALCIFEROL
  14. COLLAGEN [Concomitant]
     Active Substance: COLLAGEN
  15. JWH-018 [Concomitant]
     Active Substance: JWH-018

REACTIONS (12)
  - Time perception altered [None]
  - Aspiration [None]
  - Vomiting [None]
  - Loss of consciousness [None]
  - Feeling hot [None]
  - Confusional arousal [None]
  - Blood pressure fluctuation [None]
  - Headache [None]
  - Feeling abnormal [None]
  - Balance disorder [None]
  - Drug hypersensitivity [None]
  - Gastrooesophageal reflux disease [None]

NARRATIVE: CASE EVENT DATE: 20220819
